FAERS Safety Report 7308158-1 (Version None)
Quarter: 2011Q1

REPORT INFORMATION
  Report Type: 
  Country: None (occurrence: None)
  Receive Date: 20110210
  Receipt Date: 20110127
  Transmission Date: 20110831
  Serious: No
  Sender: FDA-Public Use
  Company Number: SPI201100020

PATIENT
  Age: 61 Year
  Sex: Female
  Weight: 70.7 kg

DRUGS (8)
  1. VERAPAMIL HYDROCHLORIDE [Concomitant]
  2. CELEXA [Concomitant]
  3. BENICAR [Concomitant]
  4. TOPROL-XL [Concomitant]
  5. BENEFIBER (CYAMOPOSIS TETRAGONOLOBA GUM) [Concomitant]
  6. AMITIZA [Suspect]
     Indication: CONSTIPATION
     Dosage: 8 MCG, BID, ORAL; 24 MCG, BID, ORAL
     Route: 048
     Dates: start: 20110116
  7. AMITIZA [Suspect]
     Indication: CONSTIPATION
     Dosage: 8 MCG, BID, ORAL; 24 MCG, BID, ORAL
     Route: 048
     Dates: start: 20110102, end: 20110116
  8. SERZONE [Concomitant]

REACTIONS (12)
  - DRUG INEFFECTIVE [None]
  - DEPRESSION [None]
  - WEIGHT DECREASED [None]
  - CHEST DISCOMFORT [None]
  - DRY MOUTH [None]
  - DIZZINESS [None]
  - RECTAL DISCHARGE [None]
  - DECREASED APPETITE [None]
  - FLATULENCE [None]
  - NAUSEA [None]
  - DRUG TOLERANCE [None]
  - THROAT TIGHTNESS [None]
